FAERS Safety Report 15036503 (Version 2)
Quarter: 2020Q4

REPORT INFORMATION
  Report Type: Spontaneous
  Country: FR (occurrence: FR)
  Receive Date: 20180620
  Receipt Date: 20201228
  Transmission Date: 20210113
  Serious: Yes (Hospitalization, Other)
  Sender: FDA-Public Use
  Company Number: FR-SA-2018SA150503

PATIENT

DRUGS (3)
  1. OFLOXACIN. [Suspect]
     Active Substance: OFLOXACIN
     Indication: DEVICE RELATED INFECTION
     Dosage: 600 MG, QD
     Route: 048
     Dates: start: 20180416, end: 20180509
  2. RIFADINE [Suspect]
     Active Substance: RIFAMPIN
     Indication: DEVICE RELATED INFECTION
     Dosage: 900 MG, QD
     Route: 048
     Dates: start: 20180416, end: 20180509
  3. VANCOMYCINE SANDOZ [Suspect]
     Active Substance: VANCOMYCIN
     Indication: DEVICE RELATED INFECTION
     Route: 041
     Dates: start: 20180409, end: 20180504

REACTIONS (1)
  - Drug reaction with eosinophilia and systemic symptoms [Recovered/Resolved]

NARRATIVE: CASE EVENT DATE: 20180503
